FAERS Safety Report 5298983-3 (Version None)
Quarter: 2007Q2

REPORT INFORMATION
  Report Type: 
  Country: None (occurrence: None)
  Receive Date: 20070412
  Receipt Date: 20070412
  Transmission Date: 20071010
  Serious: Yes (Death, Hospitalization)
  Sender: FDA-Public Use
  Company Number: None

PATIENT
  Age: 69 Year
  Sex: Male
  Weight: 78.4723 kg

DRUGS (2)
  1. GEMCITABINE [Suspect]
     Dosage: 1000MG/M2 D 1,8,15 IV DRIP
     Route: 041
     Dates: start: 20061115, end: 20070327
  2. NOVASOY/ERLOTINIB [Suspect]
     Dosage: 3 150MT B.I.D./150MG QD X 28 DAYS PO
     Route: 048
     Dates: start: 20061115, end: 20070327

REACTIONS (3)
  - MALIGNANT NEOPLASM PROGRESSION [None]
  - PAIN [None]
  - PANCREATIC CARCINOMA [None]
